FAERS Safety Report 7171579-4 (Version None)
Quarter: 2010Q4

REPORT INFORMATION
  Report Type: 
  Country: None (occurrence: None)
  Receive Date: 20101217
  Receipt Date: 20101209
  Transmission Date: 20110411
  Serious: No
  Sender: FDA-Public Use
  Company Number: US-BIOGENIDEC-2010BI043669

PATIENT
  Age: 50 Year
  Sex: Female

DRUGS (6)
  1. AVONEX [Suspect]
     Indication: MULTIPLE SCLEROSIS
     Route: 030
     Dates: start: 20100129, end: 20100312
  2. DILATATION EYE DROPS (NOS) [Concomitant]
     Indication: IRITIS
     Dates: start: 20080101
  3. EYE PRESSURE EYE DROPS (NOS) [Concomitant]
     Indication: IRITIS
     Dates: start: 20080101
  4. ANTIBIOTIC EYE DROPS (NOS) [Concomitant]
     Indication: IRITIS
     Dates: start: 20080101
  5. PRED FORTE EYE DROPS (NOS) [Concomitant]
     Indication: IRITIS
     Dates: start: 20080101
  6. MOISTURE EYE DROPS [Concomitant]
     Indication: IRITIS
     Dates: start: 20080101

REACTIONS (8)
  - ARTHRITIS [None]
  - IRITIS [None]
  - JOINT RANGE OF MOTION DECREASED [None]
  - MIGRAINE [None]
  - MUSCLE TIGHTNESS [None]
  - NECK PAIN [None]
  - SWELLING FACE [None]
  - UPPER LIMB FRACTURE [None]
